FAERS Safety Report 8461219-6 (Version None)
Quarter: 2012Q2

REPORT INFORMATION
  Report Type: 
  Country: None (occurrence: None)
  Receive Date: 20120625
  Receipt Date: 20120611
  Transmission Date: 20120825
  Serious: Yes (Life-Threatening, Hospitalization, Other)
  Sender: FDA-Public Use
  Company Number: ZA-RANBAXY-2012RR-57171

PATIENT
  Age: 58 Year
  Sex: Female

DRUGS (4)
  1. LIOTHYRONINE SODIUM [Suspect]
     Indication: WEIGHT DECREASED
     Dosage: UNK
     Route: 048
  2. SIBUTRAMINE HYDROCHLORIDE MONOHYDRATE [Suspect]
     Indication: WEIGHT DECREASED
     Dosage: UNK
     Route: 048
  3. HYDROCHLOROTHIAZIDE [Suspect]
     Indication: WEIGHT DECREASED
     Dosage: UNK
     Route: 048
  4. METFORMIN HCL [Suspect]
     Indication: WEIGHT DECREASED
     Dosage: UNK
     Route: 048

REACTIONS (4)
  - CARDIOMYOPATHY [None]
  - MITRAL VALVE INCOMPETENCE [None]
  - ARRHYTHMIA [None]
  - TRICUSPID VALVE INCOMPETENCE [None]
